FAERS Safety Report 8060193-4 (Version None)
Quarter: 2012Q1

REPORT INFORMATION
  Report Type: 
  Country: None (occurrence: None)
  Receive Date: 20120119
  Receipt Date: 20120119
  Transmission Date: 20120608
  Serious: Yes (Hospitalization)
  Sender: FDA-Public Use
  Company Number: None

PATIENT
  Age: 85 Year
  Sex: Female
  Weight: 79.9 kg

DRUGS (12)
  1. VIT E [Concomitant]
  2. ASPIRIN [Suspect]
     Indication: CORONARY ARTERY DISEASE
     Dosage: 81MG DAILY PO  CHRONIC
     Route: 048
  3. METOPROLOL TARTRATE [Concomitant]
  4. VIT D3 [Concomitant]
  5. CA + VIT D [Concomitant]
  6. PLAVIX [Suspect]
     Indication: CORONARY ARTERY DISEASE
     Dosage: 75MG EOD PO CHRONIC
     Route: 048
  7. AMLODIPINE [Concomitant]
  8. LEVOTHYROXINE SODIUM [Concomitant]
  9. SIMVASTATIN [Concomitant]
  10. VITAMIN B-12 [Concomitant]
  11. TRIAMTERENE AND HYDROCHLOROTHIAZIDE [Concomitant]
  12. POTASSIUM CHLORIDE [Concomitant]

REACTIONS (4)
  - ANAEMIA [None]
  - DYSPNOEA EXERTIONAL [None]
  - GASTROINTESTINAL HAEMORRHAGE [None]
  - FLUID OVERLOAD [None]
